FAERS Safety Report 9048668 (Version 1)
Quarter: 2013Q1

REPORT INFORMATION
  Report Type: Spontaneous
  Country: US (occurrence: None)
  Receive Date: 20130130
  Receipt Date: 20130130
  Transmission Date: 20140127
  Serious: Yes (Other)
  Sender: FDA-Public Use
  Company Number: None

PATIENT
  Age: 52 Year
  Sex: Female

DRUGS (1)
  1. ENBREL [Suspect]
     Indication: RHEUMATOID ARTHRITIS
     Dosage: ONCE WEEKLY
     Route: 058
     Dates: start: 20120611

REACTIONS (3)
  - Abdominal distension [None]
  - Local swelling [None]
  - Joint swelling [None]
